FAERS Safety Report 19162695 (Version 3)
Quarter: 2021Q2

REPORT INFORMATION
  Report Type: Spontaneous
  Country: US (occurrence: US)
  Receive Date: 20210421
  Receipt Date: 20210513
  Transmission Date: 20210717
  Serious: No
  Sender: FDA-Public Use
  Company Number: US-GLAXOSMITHKLINE-US2021AMR085382

PATIENT
  Sex: Female

DRUGS (2)
  1. ACITRETIN. [Suspect]
     Active Substance: ACITRETIN
     Indication: PRURITUS
  2. ACITRETIN. [Suspect]
     Active Substance: ACITRETIN
     Indication: TRANSIENT ACANTHOLYTIC DERMATOSIS
     Dosage: UNK

REACTIONS (3)
  - Insomnia [Unknown]
  - Drug ineffective [Unknown]
  - Discomfort [Unknown]
